FAERS Safety Report 25275290 (Version 1)
Quarter: 2025Q2

REPORT INFORMATION
  Report Type: Spontaneous
  Country: US (occurrence: US)
  Receive Date: 20250506
  Receipt Date: 20250506
  Transmission Date: 20250716
  Serious: No
  Sender: MERCK SHARP & DOHME LLC
  Company Number: US-009507513-2278079

PATIENT
  Age: 79 Year
  Sex: Male

DRUGS (3)
  1. KEYTRUDA [Suspect]
     Active Substance: PEMBROLIZUMAB
     Indication: Prostate cancer
     Dosage: EVERY 3 WEEKS
     Route: 042
     Dates: start: 2025
  2. LOSARTAN [Concomitant]
     Active Substance: LOSARTAN
  3. dulcolax [Concomitant]

REACTIONS (2)
  - Haematuria [Recovered/Resolved]
  - Pollakiuria [Recovered/Resolved]

NARRATIVE: CASE EVENT DATE: 20250417
